FAERS Safety Report 18847604 (Version 1)
Quarter: 2021Q1

REPORT INFORMATION
  Report Type: Spontaneous
  Country: BE (occurrence: BE)
  Receive Date: 20210204
  Receipt Date: 20210204
  Transmission Date: 20210419
  Serious: Yes (Death)
  Sender: FDA-Public Use
  Company Number: BE-ELI_LILLY_AND_COMPANY-BE202102000911

PATIENT

DRUGS (1)
  1. TALTZ [Suspect]
     Active Substance: IXEKIZUMAB
     Indication: PRODUCT USED FOR UNKNOWN INDICATION
     Dosage: 80 MG, UNKNOWN
     Route: 065

REACTIONS (2)
  - Death [Fatal]
  - Depressed mood [Unknown]
